FAERS Safety Report 8976309 (Version 2)
Quarter: 2014Q2

REPORT INFORMATION
  Report Type: Report from Study
  Country: BR (occurrence: BR)
  Receive Date: 20121220
  Receipt Date: 20131018
  Transmission Date: 20141212
  Serious: Yes (Hospitalization)
  Sender: FDA-Public Use
  Company Number: BR-PFIZER INC-2012316728

PATIENT
  Age: 49 Year
  Sex: Female
  Weight: 86.5 kg

DRUGS (7)
  1. METHOTREXATE SODIUM [Suspect]
     Indication: RHEUMATOID ARTHRITIS
     Dosage: 12.5 MG 1 IN 1 WK
     Dates: start: 20060103, end: 20110404
  2. GEMFIBROZIL [Suspect]
     Dosage: UNK
     Dates: start: 20100520, end: 20110404
  3. SIMVASTATIN [Suspect]
     Dosage: UNK
     Dates: start: 20080107, end: 20110404
  4. PARACETAMOL [Concomitant]
     Dosage: 750 MG
     Dates: start: 20060103, end: 20110404
  5. PREDNISONE [Concomitant]
     Dosage: UNK
     Dates: start: 20060811
  6. IMIPRAMINE [Concomitant]
     Dosage: UNK
     Dates: start: 20030928
  7. FLUOXETINE [Concomitant]
     Dosage: 80 MG
     Dates: start: 20020928

REACTIONS (1)
  - Hepatitis [Recovered/Resolved]
